FAERS Safety Report 8811490 (Version 2)
Quarter: 2012Q4

REPORT INFORMATION
  Report Type: Report from Study
  Country: PH (occurrence: PH)
  Receive Date: 20120927
  Receipt Date: 20121219
  Transmission Date: 20130627
  Serious: Yes (Death)
  Sender: FDA-Public Use
  Company Number: PH-ASTELLAS-2012JP008749

PATIENT
  Sex: Male

DRUGS (2)
  1. MICAFUNGIN INJECTION [Suspect]
     Indication: FUNGAL OESOPHAGITIS
     Dosage: UNK
     Route: 065
     Dates: start: 20120808, end: 20120816
  2. MICAFUNGIN INJECTION [Suspect]
     Indication: RESPIRATORY MONILIASIS

REACTIONS (1)
  - Haemorrhage [Fatal]
